FAERS Safety Report 25038332 (Version 1)
Quarter: 2025Q1

REPORT INFORMATION
  Report Type: Spontaneous
  Country: IT (occurrence: IT)
  Receive Date: 20250304
  Receipt Date: 20250304
  Transmission Date: 20250409
  Serious: Yes (Life-Threatening, Hospitalization, Other)
  Sender: SANOFI AVENTIS
  Company Number: None

PATIENT
  Age: 54 Year
  Sex: Female

DRUGS (7)
  1. LAMOTRIGINE [Suspect]
     Active Substance: LAMOTRIGINE
     Dosage: 600 MG, QD
     Route: 048
     Dates: start: 20220110, end: 20220110
  2. TRIAZOLAM [Suspect]
     Active Substance: TRIAZOLAM
     Dosage: 750 MG, QD
     Route: 048
     Dates: start: 20220110, end: 20220110
  3. LORAZEPAM [Suspect]
     Active Substance: LORAZEPAM
     Dosage: 2.5 MG, QD
     Route: 048
     Dates: start: 20220110, end: 20220110
  4. DIAZEPAM [Suspect]
     Active Substance: DIAZEPAM
     Dosage: 40 MG, QD
     Route: 048
     Dates: start: 20220110, end: 20220110
  5. PAROXETINE HYDROCHLORIDE [Suspect]
     Active Substance: PAROXETINE HYDROCHLORIDE
     Dosage: 60 MG, QD
     Route: 048
     Dates: start: 20220110, end: 20220110
  6. QUETIAPINE FUMARATE [Suspect]
     Active Substance: QUETIAPINE FUMARATE
     Dosage: 1800 MG, QD
     Route: 048
     Dates: start: 20220110, end: 20220110
  7. ZOLPIDEM TARTRATE [Suspect]
     Active Substance: ZOLPIDEM TARTRATE
     Dosage: 30 MG, QD
     Route: 048
     Dates: start: 20220110, end: 20220110

REACTIONS (3)
  - Drug abuse [Recovered/Resolved]
  - Intentional self-injury [Recovered/Resolved]
  - Sopor [Recovered/Resolved]

NARRATIVE: CASE EVENT DATE: 20220110
